FAERS Safety Report 4477078-2 (Version None)
Quarter: 2004Q4

REPORT INFORMATION
  Report Type: 
  Country: None (occurrence: None)
  Receive Date: 20041013
  Receipt Date: 20040928
  Transmission Date: 20050328
  Serious: Yes (Hospitalization)
  Sender: FDA-Public Use
  Company Number: US_0409106206

PATIENT
  Age: 55 Year
  Sex: Male
  Weight: 95 kg

DRUGS (3)
  1. XIGRIS [Suspect]
     Indication: SEPTIC SHOCK
     Dosage: 50 MG DAY
     Dates: start: 20040925
  2. HYDROCORTISONE [Concomitant]
  3. ANTIBIOTIC [Concomitant]

REACTIONS (1)
  - PLATELET COUNT DECREASED [None]
